FAERS Safety Report 17899476 (Version 1)
Quarter: 2020Q2

REPORT INFORMATION
  Report Type: Spontaneous
  Country: US (occurrence: US)
  Receive Date: 20200615
  Receipt Date: 20200615
  Transmission Date: 20200714
  Serious: Yes (Other)
  Sender: FDA-Public Use
  Company Number: None

PATIENT

DRUGS (13)
  1. TRIKAFTA [Suspect]
     Active Substance: ELEXACAFTOR\IVACAFTOR\TEZACAFTOR
     Indication: CYSTIC FIBROSIS
     Route: 048
     Dates: start: 20200323
  2. VITAMIN D3 5,000 UNITS [Concomitant]
  3. ZINC  50MG TABLETS [Concomitant]
  4. CREON [Concomitant]
     Active Substance: PANCRELIPASE AMYLASE\PANCRELIPASE LIPASE\PANCRELIPASE PROTEASE
  5. PROAIR HFA [Concomitant]
     Active Substance: ALBUTEROL SULFATE
  6. URSODIOL 250MG TABLETS [Concomitant]
  7. PULMOZYME [Concomitant]
     Active Substance: DORNASE ALFA
  8. DEKAS PLUS [Concomitant]
  9. REGULOID CAPSULE [Concomitant]
  10. PROBIOTIC CAPSULE [Concomitant]
  11. SODIUM CHLORIDE 7% NEBULIZER SOLUTION [Concomitant]
  12. TUMERIC 500MG CAPSULE [Concomitant]
  13. LUPRON DEPOT 30MG INJECTION [Concomitant]

REACTIONS (4)
  - Pyrexia [None]
  - Anosmia [None]
  - Ageusia [None]
  - Liver function test increased [None]
